FAERS Safety Report 9846595 (Version 1)
Quarter: 2014Q1

REPORT INFORMATION
  Report Type: Report from Study
  Country: US (occurrence: US)
  Receive Date: 20140127
  Receipt Date: 20140127
  Transmission Date: 20141002
  Serious: Yes (Other)
  Sender: FDA-Public Use
  Company Number: US-GLAXOSMITHKLINE-A1058116A

PATIENT
  Age: 59 Year
  Sex: Female
  Weight: 106 kg

DRUGS (3)
  1. ZANAMIVIR [Suspect]
     Indication: INFLUENZA
     Dosage: 600MG CYCLIC
     Route: 042
     Dates: start: 20140108
  2. VANCOMYCIN [Suspect]
     Indication: SEPSIS
     Route: 042
     Dates: start: 20140107, end: 20140114
  3. ZOSYN [Suspect]
     Indication: SEPSIS
     Route: 042
     Dates: start: 20140105, end: 20140114

REACTIONS (1)
  - Thrombocytopenia [Recovered/Resolved]
